FAERS Safety Report 25417602 (Version 1)
Quarter: 2025Q2

REPORT INFORMATION
  Report Type: Spontaneous
  Country: ES (occurrence: ES)
  Receive Date: 20250610
  Receipt Date: 20250610
  Transmission Date: 20250717
  Serious: Yes (Other)
  Sender: AMICUS THERAPEUTICS
  Company Number: ES-AMICUS THERAPEUTICS, INC.-AMI_4072

PATIENT
  Sex: Male

DRUGS (1)
  1. GALAFOLD [Suspect]
     Active Substance: MIGALASTAT HYDROCHLORIDE
     Indication: Fabry^s disease
     Route: 048
     Dates: start: 202103, end: 202505

REACTIONS (1)
  - Renal impairment [Unknown]
